FAERS Safety Report 8615376-9 (Version None)
Quarter: 2012Q3

REPORT INFORMATION
  Report Type: 
  Country: None (occurrence: None)
  Receive Date: 20120815
  Receipt Date: 20120815
  Transmission Date: 20120928
  Serious: Yes (Hospitalization)
  Sender: FDA-Public Use
  Company Number: None

PATIENT
  Age: 57 Year
  Sex: Female
  Weight: 79.3795 kg

DRUGS (7)
  1. LORAZEPAM [Concomitant]
  2. AMLODIPINE [Concomitant]
  3. LEVETIRACETAM [Concomitant]
  4. ASPIRIN [Concomitant]
  5. ENOXAPARIN [Concomitant]
  6. METOPROLOL TARTRATE [Concomitant]
  7. OXCARBAZEPINE [Suspect]
     Indication: CONVULSION
     Dosage: 600MG Q12H PO
     Route: 048
     Dates: start: 20120329, end: 20120813

REACTIONS (5)
  - CONVULSION [None]
  - DRUG LEVEL DECREASED [None]
  - FALL [None]
  - HYPONATRAEMIA [None]
  - TREATMENT NONCOMPLIANCE [None]
